FAERS Safety Report 7007287-X (Version None)
Quarter: 2010Q3

REPORT INFORMATION
  Report Type: 
  Country: None (occurrence: None)
  Receive Date: 20100922
  Receipt Date: 20100913
  Transmission Date: 20110219
  Serious: Yes (Other)
  Sender: FDA-Public Use
  Company Number: PHHY2010DE61080

PATIENT
  Age: 78 Year
  Sex: Male

DRUGS (3)
  1. RASILEZ [Suspect]
     Indication: HYPERTENSION
     Dosage: 300MG, UNK
     Route: 048
     Dates: start: 20080101, end: 20080101
  2. RASILEZ [Suspect]
     Dosage: 300MG/D
     Route: 048
     Dates: start: 20100901
  3. VERAPAMIL [Concomitant]
     Indication: ATRIAL FIBRILLATION
     Dosage: UNK
     Dates: end: 20100801

REACTIONS (3)
  - ATRIAL FIBRILLATION [None]
  - BLOOD PRESSURE INCREASED [None]
  - HEART RATE DECREASED [None]
